FAERS Safety Report 13060553 (Version 1)
Quarter: 2016Q4

REPORT INFORMATION
  Report Type: Report from Study
  Country: US (occurrence: US)
  Receive Date: 20161224
  Receipt Date: 20161224
  Transmission Date: 20170207
  Serious: Yes (Hospitalization, Other)
  Sender: FDA-Public Use
  Company Number: US-JNJFOC-20161219601

PATIENT
  Sex: Male

DRUGS (4)
  1. LOSARTIN [Concomitant]
     Active Substance: LOSARTAN
  2. ARANESP [Concomitant]
     Active Substance: DARBEPOETIN ALFA
  3. IMBRUVICA [Suspect]
     Active Substance: IBRUTINIB
     Indication: CHRONIC LYMPHOCYTIC LEUKAEMIA
     Route: 048
     Dates: start: 20141010
  4. EXELAN [Concomitant]

REACTIONS (1)
  - Cerebral haemorrhage [Unknown]
